FAERS Safety Report 25954966 (Version 2)
Quarter: 2025Q4

REPORT INFORMATION
  Report Type: Spontaneous
  Country: US (occurrence: US)
  Receive Date: 20251024
  Receipt Date: 20251103
  Transmission Date: 20260117
  Serious: Yes (Other)
  Sender: PARATEK PHARMACEUTICALS
  Company Number: US-PARATEK PHARMACEUTICALS, INC.-2025PTK01331

PATIENT
  Age: 18 Year
  Sex: Female

DRUGS (4)
  1. OMADACYCLINE [Suspect]
     Active Substance: OMADACYCLINE
     Indication: Borrelia infection
     Dosage: 2 DOSES OF OMADACYCLINE (LOADING DOSE) ON DAY 1
     Route: 042
     Dates: start: 20250831, end: 20250831
  2. OMADACYCLINE [Suspect]
     Active Substance: OMADACYCLINE
     Indication: Mycoplasma infection
     Dosage: 3RD DOSE OF OMADACYCLINE ON DAY 2
     Route: 042
     Dates: start: 20250901, end: 20250901
  3. OMADACYCLINE [Suspect]
     Active Substance: OMADACYCLINE
     Indication: Vascular device infection
  4. OMADACYCLINE [Suspect]
     Active Substance: OMADACYCLINE
     Indication: Staphylococcal infection

REACTIONS (6)
  - Intraocular pressure increased [Recovering/Resolving]
  - Back pain [Recovering/Resolving]
  - Photosensitivity reaction [Recovering/Resolving]
  - Headache [Recovering/Resolving]
  - Nausea [Recovering/Resolving]
  - Off label use [Recovered/Resolved]

NARRATIVE: CASE EVENT DATE: 20250831
